FAERS Safety Report 5662396-2 (Version None)
Quarter: 2008Q1

REPORT INFORMATION
  Report Type: 
  Country: None (occurrence: None)
  Receive Date: 20080313
  Receipt Date: 20080310
  Transmission Date: 20080703
  Serious: Yes (Death)
  Sender: FDA-Public Use
  Company Number: IT-BAYER-200814569GPV

PATIENT
  Age: 59 Year
  Sex: Male
  Weight: 68 kg

DRUGS (5)
  1. SORAFENIB [Suspect]
     Indication: PANCREATIC CARCINOMA
     Dosage: TOTAL DAILY DOSE: 800 MG
     Route: 048
     Dates: start: 20080114, end: 20080129
  2. GEMCITABINE [Suspect]
     Indication: PANCREATIC CARCINOMA
     Dosage: UNIT DOSE: 1000 MG/M2
     Route: 042
     Dates: start: 20080114, end: 20080114
  3. GEMCITABINE [Suspect]
     Dosage: UNIT DOSE: 1000 MG/M2
     Route: 042
     Dates: start: 20080121, end: 20080121
  4. CISPLATIN [Suspect]
     Indication: PANCREATIC CARCINOMA
     Dosage: UNIT DOSE: 25 MG/M2
     Route: 042
     Dates: start: 20080121, end: 20080121
  5. CISPLATIN [Suspect]
     Dosage: UNIT DOSE: 25 MG/M2
     Route: 042
     Dates: start: 20080114, end: 20080114

REACTIONS (2)
  - GASTROINTESTINAL PERFORATION [None]
  - SEPTIC SHOCK [None]
